FAERS Safety Report 10717776 (Version 1)
Quarter: 2015Q1

REPORT INFORMATION
  Report Type: Spontaneous
  Country: TN (occurrence: TN)
  Receive Date: 20150116
  Receipt Date: 20150116
  Transmission Date: 20150721
  Serious: Yes (Other)
  Sender: FDA-Public Use
  Company Number: TN-MYLANLABS-2015M1000294

PATIENT

DRUGS (7)
  1. BLEOMYCIN [Suspect]
     Active Substance: BLEOMYCIN SULFATE
     Indication: SINUS CANCER METASTATIC
     Dosage: UNK
     Dates: start: 2008
  2. VEPESIDE [Suspect]
     Active Substance: ETOPOSIDE
     Indication: SINUS CANCER METASTATIC
  3. SETRON /00944301/ [Suspect]
     Active Substance: AZITHROMYCIN ANHYDROUS
     Indication: SINUS CANCER METASTATIC
  4. HOLOXAN [Suspect]
     Active Substance: IFOSFAMIDE
     Indication: SINUS CANCER METASTATIC
  5. MESNA. [Suspect]
     Active Substance: MESNA
     Indication: SINUS CANCER METASTATIC
  6. TAXOTERE [Suspect]
     Active Substance: DOCETAXEL
     Indication: SINUS CANCER METASTATIC
  7. CISPLATINE MYLAN 25 MG, SOLUTION INJECTABLE B/1 FL/25 ML [Suspect]
     Active Substance: CISPLATIN
     Indication: SINUS CANCER METASTATIC
     Dosage: UNK
     Dates: start: 2008

REACTIONS (3)
  - Vertigo [Not Recovered/Not Resolved]
  - Tinnitus [Unknown]
  - Paraesthesia [Not Recovered/Not Resolved]

NARRATIVE: CASE EVENT DATE: 2009
